FAERS Safety Report 10202705 (Version 3)
Quarter: 2014Q2

REPORT INFORMATION
  Report Type: Spontaneous
  Country: NO (occurrence: NO)
  Receive Date: 20140528
  Receipt Date: 20140605
  Transmission Date: 20141212
  Serious: No
  Sender: FDA-Public Use
  Company Number: PHHY2013NO110669

PATIENT
  Sex: Female

DRUGS (10)
  1. SEEBRI BREEZHALER [Suspect]
     Dosage: 1 DF, QD
     Dates: start: 20130822
  2. ACETYLSALICYLIC ACID [Suspect]
     Dosage: 75 MG, UNK
  3. TRIATEC [Suspect]
  4. VENTOLINE [Concomitant]
  5. SPIRIVA [Concomitant]
  6. SERETIDE [Concomitant]
  7. FURIX [Concomitant]
     Dosage: UNK
  8. ALBYL-E [Concomitant]
     Indication: THROMBOSIS
  9. IBUPROFEN [Concomitant]
  10. PARACETAMOL [Concomitant]

REACTIONS (8)
  - Dyspnoea [Unknown]
  - Peripheral swelling [Recovering/Resolving]
  - Wound [Unknown]
  - Contusion [Recovering/Resolving]
  - Pruritus [Recovering/Resolving]
  - Decreased appetite [Recovering/Resolving]
  - Epistaxis [Recovering/Resolving]
  - Dry mouth [Unknown]
